FAERS Safety Report 15396527 (Version 2)
Quarter: 2018Q3

REPORT INFORMATION
  Report Type: Spontaneous
  Country: DK (occurrence: DK)
  Receive Date: 20180918
  Receipt Date: 20180920
  Transmission Date: 20181010
  Serious: Yes (Life-Threatening, Other)
  Sender: FDA-Public Use
  Company Number: DK-MYLANLABS-2018M1067377

PATIENT
  Age: 62 Year
  Sex: Male

DRUGS (8)
  1. INSULIN GLARGINE [Suspect]
     Active Substance: INSULIN GLARGINE
     Indication: PRODUCT USED FOR UNKNOWN INDICATION
     Dosage: UNK (INFUSION)
     Route: 065
  2. SODIUM CHLORIDE. [Suspect]
     Active Substance: SODIUM CHLORIDE
     Indication: HYPOTENSION
     Dosage: 4 L, UNK (INFUSION)
     Route: 065
  3. NOREPINEPHRINE. [Suspect]
     Active Substance: NOREPINEPHRINE
     Indication: VASOPRESSIVE THERAPY
     Dosage: UNK
  4. EPINEPHRINE. [Suspect]
     Active Substance: EPINEPHRINE
     Indication: HYPOTENSION
     Dosage: 0.6 ?G/KG, UNK (INFUSION 1 MINUTE)
     Route: 065
  5. EPINEPHRINE. [Suspect]
     Active Substance: EPINEPHRINE
     Indication: VASOPRESSIVE THERAPY
     Dosage: UNK
  6. VASOPRESSIN. [Suspect]
     Active Substance: VASOPRESSIN
     Indication: HYPOTENSION
     Dosage: UNK (INFUSION)
     Route: 065
  7. NOREPINEPHRINE. [Suspect]
     Active Substance: NOREPINEPHRINE
     Indication: HYPOTENSION
     Dosage: 1 ?G/KG, UNK (INFUSION)
     Route: 065
  8. TERLIPRESSIN [Suspect]
     Active Substance: TERLIPRESSIN
     Indication: VASOPRESSIVE THERAPY
     Dosage: 0.32 MG, 1 HOUR
     Route: 065

REACTIONS (1)
  - Drug ineffective [Unknown]
